FAERS Safety Report 7735354-1 (Version None)
Quarter: 2011Q3

REPORT INFORMATION
  Report Type: 
  Country: None (occurrence: None)
  Receive Date: 20110907
  Receipt Date: 20110905
  Transmission Date: 20111222
  Serious: Yes (Hospitalization)
  Sender: FDA-Public Use
  Company Number: JP-PFIZER INC-2011207183

PATIENT
  Age: 51 Year
  Sex: Female

DRUGS (1)
  1. VARENICLINE TARTRATE [Suspect]
     Dosage: UNK
     Route: 048
     Dates: start: 20110701

REACTIONS (9)
  - DYSPHEMIA [None]
  - MENTAL DISORDER [None]
  - SUICIDAL IDEATION [None]
  - DYSPNOEA [None]
  - ADVERSE EVENT [None]
  - MALAISE [None]
  - MOVEMENT DISORDER [None]
  - OCULAR HYPERAEMIA [None]
  - FATIGUE [None]
